FAERS Safety Report 12666963 (Version 15)
Quarter: 2017Q4

REPORT INFORMATION
  Report Type: Report from Study
  Country: NZ (occurrence: NZ)
  Receive Date: 20160819
  Receipt Date: 20171107
  Transmission Date: 20180320
  Serious: Yes (Hospitalization)
  Sender: FDA-Public Use
  Company Number: PHHO2016NZ012046

PATIENT
  Age: 61 Year
  Sex: Female
  Weight: 99.5 kg

DRUGS (48)
  1. TRAMETINIB [Suspect]
     Active Substance: TRAMETINIB
     Indication: MALIGNANT MELANOMA
     Dosage: 2 MG, QD
     Route: 048
     Dates: start: 20160614, end: 20160704
  2. TRAMETINIB [Suspect]
     Active Substance: TRAMETINIB
     Dosage: 1.5 MG, QD
     Route: 048
     Dates: start: 20160802, end: 20160812
  3. BLINDED MK-3475 [Suspect]
     Active Substance: LAMBROLIZUMAB
     Dosage: CODE NOT BROKEN
     Route: 042
     Dates: start: 20160705, end: 20160705
  4. BLINDED MK-3475 [Suspect]
     Active Substance: LAMBROLIZUMAB
     Dosage: CODE NOT BROKEN
     Route: 042
     Dates: start: 20160906
  5. BLINDED NO TREATMENT RECEIVED [Suspect]
     Active Substance: INVESTIGATIONAL PRODUCT
     Dosage: CODE NOT BROKEN
     Route: 042
     Dates: start: 20160906
  6. METOCLOPRAMIDE. [Concomitant]
     Active Substance: METOCLOPRAMIDE
     Indication: ANTIEMETIC SUPPORTIVE CARE
     Dosage: UNK
     Route: 065
  7. DABRAFENIB [Suspect]
     Active Substance: DABRAFENIB
     Dosage: 300 MG, ONCE/SINGLE
     Route: 048
     Dates: start: 20160615, end: 20160704
  8. DABRAFENIB [Suspect]
     Active Substance: DABRAFENIB
     Dosage: 300 MG, ONCE/SINGLE
     Route: 048
     Dates: start: 20160706, end: 20160707
  9. TRAMETINIB [Suspect]
     Active Substance: TRAMETINIB
     Dosage: 1 MG, QD
     Route: 048
     Dates: start: 20160906
  10. BLINDED DABRAFENIB [Suspect]
     Active Substance: DABRAFENIB
     Dosage: CODE NOT BROKEN
     Route: 042
     Dates: start: 20160906
  11. BLINDED PLACEBO [Suspect]
     Active Substance: INVESTIGATIONAL PRODUCT
     Dosage: CODE NOT BROKEN
     Route: 042
     Dates: start: 20160906
  12. ACYCLOVIR. [Concomitant]
     Active Substance: ACYCLOVIR
     Indication: ORAL HERPES
     Dosage: UNK
     Route: 065
  13. INHIBACE PLUS [Concomitant]
     Active Substance: CILAZAPRIL ANHYDROUS\HYDROCHLOROTHIAZIDE
     Indication: DIURETIC THERAPY
  14. DABRAFENIB [Suspect]
     Active Substance: DABRAFENIB
     Indication: MALIGNANT MELANOMA
     Dosage: 150 MG, BID
     Route: 048
     Dates: start: 20160614, end: 20160614
  15. DABRAFENIB [Suspect]
     Active Substance: DABRAFENIB
     Dosage: 150 MG, BID
     Route: 048
     Dates: start: 20160802, end: 20160815
  16. TRAMETINIB [Suspect]
     Active Substance: TRAMETINIB
     Dosage: 2 MG, QD
     Route: 048
     Dates: start: 20160705, end: 20160705
  17. BLINDED DABRAFENIB [Suspect]
     Active Substance: DABRAFENIB
     Dosage: CODE NOT BROKEN
     Route: 042
     Dates: start: 20160726, end: 20160816
  18. SYMBICORT [Concomitant]
     Active Substance: BUDESONIDE\FORMOTEROL FUMARATE DIHYDRATE
     Indication: PRODUCT USED FOR UNKNOWN INDICATION
     Dosage: 2 DF, UNK
     Route: 065
     Dates: start: 20100101
  19. HIDROCORTISONA//HYDROCORTISONE ACETATE [Concomitant]
     Indication: PRODUCT USED FOR UNKNOWN INDICATION
     Dosage: 1 DF, UNK
     Route: 065
     Dates: start: 20160608
  20. ALBUTEROL. [Concomitant]
     Active Substance: ALBUTEROL
     Indication: DYSPNOEA
     Dosage: UNK
     Route: 065
  21. DABRAFENIB [Suspect]
     Active Substance: DABRAFENIB
     Dosage: 200 MG, ONCE/SINGLE
     Route: 048
     Dates: start: 20160719, end: 20160719
  22. DABRAFENIB [Suspect]
     Active Substance: DABRAFENIB
     Dosage: 75 MG, BID
     Route: 048
     Dates: start: 20160816, end: 20160816
  23. BLINDED PLACEBO [Suspect]
     Active Substance: INVESTIGATIONAL PRODUCT
     Indication: MALIGNANT MELANOMA
     Dosage: CODE NOT BROKEN
     Route: 042
     Dates: start: 20160614, end: 20160614
  24. BLINDED PLACEBO [Suspect]
     Active Substance: INVESTIGATIONAL PRODUCT
     Dosage: CODE NOT BROKEN
     Route: 042
     Dates: start: 20160705, end: 20160705
  25. BLINDED PLACEBO [Suspect]
     Active Substance: INVESTIGATIONAL PRODUCT
     Dosage: CODE NOT BROKEN
     Route: 042
     Dates: start: 20160726, end: 20160816
  26. DABRAFENIB [Suspect]
     Active Substance: DABRAFENIB
     Dosage: 150 MG, ONCE/SINGLE
     Route: 048
     Dates: start: 20160708, end: 20160708
  27. DABRAFENIB [Suspect]
     Active Substance: DABRAFENIB
     Dosage: 100 MG, ONCE/SINGLE
     Route: 048
     Dates: start: 20160720, end: 20160720
  28. DABRAFENIB [Suspect]
     Active Substance: DABRAFENIB
     Dosage: 150 MG, BID
     Route: 048
     Dates: start: 20160907
  29. BLINDED NO TREATMENT RECEIVED [Suspect]
     Active Substance: INVESTIGATIONAL PRODUCT
     Dosage: CODE NOT BROKEN
     Route: 042
     Dates: start: 20160705, end: 20160705
  30. BLINDED TRAMETINIB [Suspect]
     Active Substance: TRAMETINIB
     Dosage: CODE NOT BROKEN
     Route: 042
     Dates: start: 20160726, end: 20160816
  31. TRAMETINIB [Suspect]
     Active Substance: TRAMETINIB
     Dosage: 1 MG, QD
     Route: 048
     Dates: start: 20160813, end: 20160905
  32. BLINDED DABRAFENIB [Suspect]
     Active Substance: DABRAFENIB
     Indication: MALIGNANT MELANOMA
     Dosage: CODE NOT BROKEN
     Route: 042
     Dates: start: 20160614, end: 20160614
  33. BLINDED TRAMETINIB [Suspect]
     Active Substance: TRAMETINIB
     Dosage: CODE NOT BROKEN
     Route: 042
     Dates: start: 20160705, end: 20160705
  34. DABRAFENIB [Suspect]
     Active Substance: DABRAFENIB
     Dosage: 150 MG, BID
     Route: 048
     Dates: start: 20160817, end: 20160905
  35. BLINDED MK-3475 [Suspect]
     Active Substance: LAMBROLIZUMAB
     Indication: MALIGNANT MELANOMA
     Dosage: CODE NOT BROKEN
     Route: 042
     Dates: start: 20160614, end: 20160614
  36. BLINDED NO TREATMENT RECEIVED [Suspect]
     Active Substance: INVESTIGATIONAL PRODUCT
     Indication: MALIGNANT MELANOMA
     Dosage: CODE NOT BROKEN
     Route: 042
     Dates: start: 20160614, end: 20160614
  37. BLINDED TRAMETINIB [Suspect]
     Active Substance: TRAMETINIB
     Indication: MALIGNANT MELANOMA
     Dosage: CODE NOT BROKEN
     Route: 042
     Dates: start: 20160614, end: 20160614
  38. BLINDED DABRAFENIB [Suspect]
     Active Substance: DABRAFENIB
     Dosage: CODE NOT BROKEN
     Route: 042
     Dates: start: 20160705, end: 20160705
  39. BLINDED TRAMETINIB [Suspect]
     Active Substance: TRAMETINIB
     Dosage: CODE NOT BROKEN
     Route: 042
     Dates: start: 20160906
  40. ONDANSETRON [Concomitant]
     Active Substance: ONDANSETRON
     Indication: NAUSEA
     Dosage: UNK
     Route: 065
  41. INHIBACE PLUS [Concomitant]
     Active Substance: CILAZAPRIL ANHYDROUS\HYDROCHLOROTHIAZIDE
     Indication: HYPERTENSION
     Dosage: 5 MG, UNK
     Route: 048
     Dates: start: 201409, end: 20160708
  42. DABRAFENIB [Suspect]
     Active Substance: DABRAFENIB
     Dosage: 150 MG, BID
     Route: 048
     Dates: start: 20160705, end: 20160705
  43. DABRAFENIB [Suspect]
     Active Substance: DABRAFENIB
     Dosage: 75 MG, BID
     Route: 048
     Dates: start: 20160906, end: 20160906
  44. TRAMETINIB [Suspect]
     Active Substance: TRAMETINIB
     Dosage: 2 MG, QD
     Route: 048
     Dates: start: 20160706, end: 20160720
  45. BLINDED MK-3475 [Suspect]
     Active Substance: LAMBROLIZUMAB
     Dosage: CODE NOT BROKEN
     Route: 042
     Dates: start: 20160726, end: 20160816
  46. BLINDED NO TREATMENT RECEIVED [Suspect]
     Active Substance: INVESTIGATIONAL PRODUCT
     Dosage: CODE NOT BROKEN
     Route: 042
     Dates: start: 20160726, end: 20160816
  47. HYDROCHLOROTHIAZIDE. [Concomitant]
     Active Substance: HYDROCHLOROTHIAZIDE
     Indication: PRODUCT USED FOR UNKNOWN INDICATION
     Dosage: 12.5 MG, UNK
     Route: 048
     Dates: start: 201409, end: 20160708
  48. ONDANSETRON [Concomitant]
     Active Substance: ONDANSETRON
     Indication: VOMITING

REACTIONS (3)
  - Blood creatinine increased [Recovered/Resolved]
  - Pyrexia [Recovered/Resolved]
  - Aspartate aminotransferase increased [Recovered/Resolved]

NARRATIVE: CASE EVENT DATE: 20160705
